FAERS Safety Report 23712695 (Version 9)
Quarter: 2025Q3

REPORT INFORMATION
  Report Type: Report from Study
  Country: US (occurrence: US)
  Receive Date: 20240405
  Receipt Date: 20250801
  Transmission Date: 20251021
  Serious: Yes (Hospitalization, Other)
  Sender: TAKEDA
  Company Number: US-TAKEDA-2024TUS032247

PATIENT
  Sex: Female
  Weight: 72 kg

DRUGS (42)
  1. TEDUGLUTIDE [Suspect]
     Active Substance: TEDUGLUTIDE
     Indication: Short-bowel syndrome
     Dosage: 3.6 MILLIGRAM, QD
  2. TEDUGLUTIDE [Suspect]
     Active Substance: TEDUGLUTIDE
     Dosage: 3.6 MILLIGRAM, QD
  3. TEDUGLUTIDE [Suspect]
     Active Substance: TEDUGLUTIDE
     Dosage: 0.36 MILLILITER, QD
  4. TEDUGLUTIDE [Suspect]
     Active Substance: TEDUGLUTIDE
     Dosage: 3.6 MILLIGRAM, QD
  5. TEDUGLUTIDE [Suspect]
     Active Substance: TEDUGLUTIDE
     Dosage: 4.4 MILLIGRAM, QD
  6. TEDUGLUTIDE [Suspect]
     Active Substance: TEDUGLUTIDE
     Dosage: 4.4 MILLIGRAM, QD
  7. TEDUGLUTIDE [Suspect]
     Active Substance: TEDUGLUTIDE
     Dosage: 4.4 MILLIGRAM, QD
  8. VENTOLIN HFA [Concomitant]
     Active Substance: ALBUTEROL SULFATE
  9. ACETAMINOPHEN\HYDROCODONE [Concomitant]
     Active Substance: ACETAMINOPHEN\HYDROCODONE
  10. CLONAZEPAM [Concomitant]
     Active Substance: CLONAZEPAM
  11. THEOPHYLLINE [Concomitant]
     Active Substance: THEOPHYLLINE
  12. ACETAMINOPHEN\BUTALBITAL\CAFFEINE\CODEINE PHOSPHATE [Concomitant]
     Active Substance: ACETAMINOPHEN\BUTALBITAL\CAFFEINE\CODEINE PHOSPHATE
  13. ATROPINE\DIPHENOXYLATE [Concomitant]
     Active Substance: ATROPINE\DIPHENOXYLATE
  14. METOCLOPRAMIDE HYDROCHLORIDE [Concomitant]
     Active Substance: METOCLOPRAMIDE HYDROCHLORIDE
  15. MAXIPIME [Concomitant]
     Active Substance: CEFEPIME HYDROCHLORIDE
  16. CUBICIN [Concomitant]
     Active Substance: DAPTOMYCIN
  17. IMODIUM A-D [Concomitant]
     Active Substance: LOPERAMIDE HYDROCHLORIDE
  18. BENADRYL [Concomitant]
     Active Substance: DIPHENHYDRAMINE HYDROCHLORIDE
  19. BUTRANS [Concomitant]
     Active Substance: BUPRENORPHINE
  20. MYLANTA [Concomitant]
     Active Substance: ALUMINUM HYDROXIDE\DIMETHICONE\MAGNESIUM HYDROXIDE
  21. MAALOX ANTACID [Concomitant]
     Active Substance: ALUMINUM HYDROXIDE\DIMETHICONE\MAGNESIUM HYDROXIDE
  22. FIBERCON [Concomitant]
     Active Substance: CALCIUM POLYCARBOPHIL
  23. SODIUM BICARBONATE [Concomitant]
     Active Substance: SODIUM BICARBONATE
  24. REGLAN [Concomitant]
     Active Substance: METOCLOPRAMIDE HYDROCHLORIDE
  25. LOMOTIL [Concomitant]
     Active Substance: ATROPINE SULFATE\DIPHENOXYLATE HYDROCHLORIDE
  26. ALBUTEROL SULFATE [Concomitant]
     Active Substance: ALBUTEROL SULFATE
  27. BENTYL [Concomitant]
     Active Substance: DICYCLOMINE HYDROCHLORIDE
  28. FLOMAX [Concomitant]
     Active Substance: TAMSULOSIN HYDROCHLORIDE
  29. ASPIRIN [Concomitant]
     Active Substance: ASPIRIN
  30. ANUSOL HC [Concomitant]
     Active Substance: HYDROCORTISONE
  31. NEURONTIN [Concomitant]
     Active Substance: GABAPENTIN
  32. FLONASE [Concomitant]
     Active Substance: FLUTICASONE PROPIONATE
  33. PAXIL [Concomitant]
     Active Substance: PAROXETINE HYDROCHLORIDE
  34. TOPROL XL [Concomitant]
     Active Substance: METOPROLOL SUCCINATE
  35. Artificial tears [Concomitant]
  36. CARAFATE [Concomitant]
     Active Substance: SUCRALFATE
  37. PROTONIX [Concomitant]
     Active Substance: PANTOPRAZOLE SODIUM
  38. OPTIVAR [Concomitant]
     Active Substance: AZELASTINE HYDROCHLORIDE
  39. XALATAN [Concomitant]
     Active Substance: LATANOPROST
  40. ANORO ELLIPTA [Concomitant]
     Active Substance: UMECLIDINIUM BROMIDE\VILANTEROL TRIFENATATE
  41. PROVENTIL [Concomitant]
     Active Substance: ALBUTEROL
  42. TPN [Concomitant]
     Active Substance: AMINO ACIDS\DEXTROSE\ELECTROLYTES NOS\SOYBEAN OIL

REACTIONS (6)
  - Complication associated with device [Unknown]
  - Pyrexia [Unknown]
  - Oesophageal dilatation [Unknown]
  - Infection [Unknown]
  - Weight decreased [Unknown]
  - Decreased appetite [Unknown]
